FAERS Safety Report 5485020-0 (Version None)
Quarter: 2007Q4

REPORT INFORMATION
  Report Type: 
  Country: None (occurrence: None)
  Receive Date: 20071015
  Receipt Date: 20071001
  Transmission Date: 20080405
  Serious: Yes (Other)
  Sender: FDA-Public Use
  Company Number: PHHO2007BR16343

PATIENT
  Age: 75 Year
  Sex: Female

DRUGS (1)
  1. ELIDEL [Suspect]
     Indication: VITILIGO
     Route: 061
     Dates: start: 20061001

REACTIONS (6)
  - CARDIAC OPERATION [None]
  - ERYTHEMA [None]
  - PRURITUS [None]
  - SKIN DISCOLOURATION [None]
  - VITILIGO [None]
  - WEIGHT INCREASED [None]
